FAERS Safety Report 12981685 (Version 1)
Quarter: 2016Q4

REPORT INFORMATION
  Report Type: Other
  Country: JP (occurrence: JP)
  Receive Date: 20161129
  Receipt Date: 20161129
  Transmission Date: 20170207
  Serious: Yes (Hospitalization)
  Sender: FDA-Public Use
  Company Number: JP-LUPIN PHARMACEUTICALS INC.-2016-05275

PATIENT
  Age: 72 Year
  Sex: Female

DRUGS (2)
  1. VANCOMYCIN [Suspect]
     Active Substance: VANCOMYCIN
     Dosage: AFTER THE SECOND DAY
     Route: 042
  2. VANCOMYCIN [Suspect]
     Active Substance: VANCOMYCIN
     Indication: STAPHYLOCOCCAL INFECTION
     Dosage: ON THE FIRST DAY
     Route: 042

REACTIONS (3)
  - Hypovolaemic shock [Recovered/Resolved]
  - Thrombocytopenia [Recovered/Resolved]
  - Gastrointestinal haemorrhage [Recovered/Resolved]
